FAERS Safety Report 6258190-4 (Version None)
Quarter: 2009Q3

REPORT INFORMATION
  Report Type: 
  Country: None (occurrence: None)
  Receive Date: 20090707
  Receipt Date: 20090624
  Transmission Date: 20100115
  Serious: Yes (Hospitalization)
  Sender: FDA-Public Use
  Company Number: JP-JNJFOC-20090605960

PATIENT
  Sex: Male
  Weight: 71.7 kg

DRUGS (16)
  1. PLACEBO [Suspect]
     Indication: POST HERPETIC NEURALGIA
     Route: 062
  2. FENTANYL [Suspect]
     Route: 062
  3. FENTANYL [Suspect]
     Route: 062
  4. FENTANYL [Suspect]
     Route: 062
  5. FENTANYL [Suspect]
     Indication: POST HERPETIC NEURALGIA
     Route: 062
  6. TRYPTANOL [Concomitant]
     Indication: PAIN
     Route: 048
  7. MYSLEE [Concomitant]
     Indication: INSOMNIA
     Route: 048
  8. NEUROTROPIN [Concomitant]
     Indication: PAIN
     Dosage: 4 LU
     Route: 048
  9. NORVASC [Concomitant]
     Indication: HYPERTENSION
     Route: 048
  10. DIOVAN [Concomitant]
     Indication: HYPERTENSION
     Route: 048
  11. ASPIRIN [Concomitant]
     Indication: CEREBRAL INFARCTION
     Route: 048
  12. CRESTOR [Concomitant]
     Indication: HYPERLIPIDAEMIA
     Route: 048
  13. TAKEPRON [Concomitant]
     Indication: PROPHYLAXIS AGAINST GASTROINTESTINAL ULCER
     Route: 048
  14. VOLLEY [Concomitant]
     Indication: ONYCHOMYCOSIS
     Route: 003
  15. NAUZELIN [Concomitant]
     Indication: NAUSEA
     Route: 048
  16. SENNOSIDE [Concomitant]
     Indication: CONSTIPATION
     Route: 048

REACTIONS (1)
  - INAPPROPRIATE ANTIDIURETIC HORMONE SECRETION [None]
